FAERS Safety Report 4733668-0 (Version None)
Quarter: 2005Q3

REPORT INFORMATION
  Report Type: 
  Country: None (occurrence: None)
  Receive Date: 20050721
  Receipt Date: 20050518
  Transmission Date: 20060218
  Serious: No
  Sender: FDA-Public Use
  Company Number: 2005SP000854

PATIENT
  Age: 60 Year
  Sex: Female
  Weight: 68.0396 kg

DRUGS (5)
  1. LUNESTA [Suspect]
     Dosage: 3 MG;HS;ORAL
     Route: 048
     Dates: start: 20050517, end: 20050517
  2. WELLBUTRIN [Concomitant]
  3. TOPRAL [Concomitant]
  4. PREMARIN [Concomitant]
  5. IMITREX [Concomitant]

REACTIONS (2)
  - ANXIETY [None]
  - PARADOXICAL DRUG REACTION [None]
